FAERS Safety Report 11910472 (Version 1)
Quarter: 2016Q1

REPORT INFORMATION
  Report Type: Spontaneous
  Country: US (occurrence: US)
  Receive Date: 20160112
  Receipt Date: 20160112
  Transmission Date: 20160526
  Serious: No
  Sender: FDA-Public Use
  Company Number: US-009507513-1601USA003000

PATIENT
  Age: 23 Year
  Sex: Female
  Weight: 90.7 kg

DRUGS (2)
  1. NEXPLANON [Suspect]
     Active Substance: ETONOGESTREL
     Dosage: UNK
     Route: 059
     Dates: start: 20151123
  2. ANTIHISTAMINE ALLERGY RELIEF (DIPHENHYDRAMINE HYDROCHLORIDE) [Concomitant]
     Dosage: UNK

REACTIONS (1)
  - Rash generalised [Unknown]

NARRATIVE: CASE EVENT DATE: 20151130
